FAERS Safety Report 15322285 (Version 1)
Quarter: 2018Q3

REPORT INFORMATION
  Report Type: Spontaneous
  Country: IT (occurrence: IT)
  Receive Date: 20180827
  Receipt Date: 20180827
  Transmission Date: 20181010
  Serious: Yes (Other)
  Sender: FDA-Public Use
  Company Number: PHHY2018IT077655

PATIENT
  Age: 13 Year
  Sex: Female

DRUGS (5)
  1. QUETIAPINE. [Suspect]
     Active Substance: QUETIAPINE
     Indication: NEUROPSYCHIATRIC SYMPTOMS
     Dosage: 300 MG, QD (1 DF=100 MG/DAY UP TO 300 MG/DAY)
     Route: 048
  2. ABILIFY [Suspect]
     Active Substance: ARIPIPRAZOLE
     Dosage: UNK
     Route: 065
  3. ABILIFY [Suspect]
     Active Substance: ARIPIPRAZOLE
     Indication: MENTAL DISORDER
     Dosage: UNK
     Route: 065
  4. ABILIFY [Suspect]
     Active Substance: ARIPIPRAZOLE
     Dosage: 7.5 MG, QD
     Route: 065
  5. ABILIFY [Suspect]
     Active Substance: ARIPIPRAZOLE
     Dosage: 8 MG, UNK
     Route: 065

REACTIONS (5)
  - Product use in unapproved indication [Unknown]
  - Tardive dyskinesia [Recovered/Resolved]
  - Off label use [Unknown]
  - Drug administered to patient of inappropriate age [Unknown]
  - Incorrect dose administered [Unknown]
